FAERS Safety Report 5707296-4 (Version None)
Quarter: 2008Q2

REPORT INFORMATION
  Report Type: 
  Country: None (occurrence: None)
  Receive Date: 20080416
  Receipt Date: 20080409
  Transmission Date: 20081010
  Serious: Yes (Other)
  Sender: FDA-Public Use
  Company Number: US-ELI_LILLY_AND_COMPANY-US200804003781

PATIENT

DRUGS (2)
  1. GEMCITABINE HCL [Suspect]
     Indication: BREAST CANCER METASTATIC
     Dosage: 1000 MG/M2, OTHER
     Route: 042
     Dates: start: 20030601
  2. DOCETAXEL [Suspect]
     Indication: BREAST CANCER METASTATIC
     Dosage: 75 MG/M2, OTHER
     Route: 042
     Dates: start: 20030601

REACTIONS (1)
  - TONGUE COATED [None]
